FAERS Safety Report 5967897-5 (Version None)
Quarter: 2008Q4

REPORT INFORMATION
  Report Type: 
  Country: None (occurrence: None)
  Receive Date: 20081126
  Receipt Date: 20081117
  Transmission Date: 20090506
  Serious: Yes (Hospitalization, Other)
  Sender: FDA-Public Use
  Company Number: JP-NOVOPROD-280813

PATIENT
  Sex: Male
  Weight: 88 kg

DRUGS (10)
  1. NOVORAPID 30 MIX CHU FLEXPEN [Suspect]
     Indication: TYPE 2 DIABETES MELLITUS
     Dosage: 60 IU, QD
     Route: 058
  2. ASPIRIN [Concomitant]
     Dosage: 100 MG, QD
     Route: 048
  3. AMLODIPINE                         /00972402/ [Concomitant]
     Dosage: 5 MG, QD
     Route: 048
  4. DIOVAN                             /01319601/ [Concomitant]
     Dosage: 160 MG, QD
  5. STOMARCON [Concomitant]
     Dosage: 20 MG, QD
     Route: 048
  6. BEROM [Concomitant]
     Dosage: .3 MG, QD
     Route: 048
  7. YODEL [Concomitant]
     Dosage: 80 MG, QD
     Route: 048
  8. ELAKURASE [Concomitant]
     Dosage: 3 CAPS, QD
     Route: 048
  9. NORPACE [Concomitant]
     Dosage: 50 MG, QD
     Route: 048
  10. NITOROL [Concomitant]
     Dosage: 20 MG, QD
     Route: 048

REACTIONS (3)
  - BLOOD GLUCOSE INCREASED [None]
  - CONVULSION [None]
  - LOSS OF CONSCIOUSNESS [None]
